FAERS Safety Report 6871407-8 (Version None)
Quarter: 2010Q3

REPORT INFORMATION
  Report Type: 
  Country: None (occurrence: None)
  Receive Date: 20100721
  Receipt Date: 20100713
  Transmission Date: 20110219
  Serious: Yes (Hospitalization)
  Sender: FDA-Public Use
  Company Number: 005223

PATIENT
  Age: 51 Year
  Sex: Female

DRUGS (3)
  1. CERTOLIZUMAB PEGOL [Suspect]
     Indication: CROHN'S DISEASE
     Dosage: (SUBCUTANEOUS)
     Route: 058
  2. TYLENOL /00724201/ [Concomitant]
  3. BENADRYL [Concomitant]

REACTIONS (2)
  - NEPHROTIC SYNDROME [None]
  - SWELLING FACE [None]
